FAERS Safety Report 16018946 (Version 1)
Quarter: 2019Q1

REPORT INFORMATION
  Report Type: Spontaneous
  Country: US (occurrence: US)
  Receive Date: 20190228
  Receipt Date: 20190228
  Transmission Date: 20190418
  Serious: No
  Sender: FDA-Public Use
  Company Number: US-VALIDUS PHARMACEUTICALS LLC-US-2018VAL000918

PATIENT
  Age: 99 Year
  Sex: Female

DRUGS (1)
  1. LASIX [Suspect]
     Active Substance: FUROSEMIDE
     Indication: RESPIRATORY FAILURE
     Dosage: UNK

REACTIONS (2)
  - Product use in unapproved indication [Unknown]
  - Dehydration [Unknown]
